FAERS Safety Report 10101515 (Version 1)
Quarter: 2014Q2

REPORT INFORMATION
  Report Type: Spontaneous
  Country: GB (occurrence: GB)
  Receive Date: 20140424
  Receipt Date: 20140424
  Transmission Date: 20141212
  Serious: Yes (Hospitalization)
  Sender: FDA-Public Use
  Company Number: GB-JNJFOC-20140412736

PATIENT
  Age: 70 Year
  Sex: Female

DRUGS (15)
  1. HALOPERIDOL [Suspect]
     Indication: ANXIETY
     Dosage: 500 UNITS UNSPECIFIED
     Route: 065
  2. CALCEOS [Concomitant]
     Route: 048
  3. METFORMIN [Concomitant]
     Route: 048
  4. VITAMINUM B-COMPLEX [Concomitant]
     Route: 048
  5. ALENDRONIC ACID [Concomitant]
     Dosage: 70 UNSPECIFIED UNITS
     Route: 065
  6. ALLOPURINOL [Concomitant]
     Dosage: 300.0 UNSPECIFIED UNITS
     Route: 048
     Dates: start: 20140320
  7. CARBOCISTEINE [Concomitant]
     Dosage: 750.0 UNSPECIFIED UNITS
     Route: 065
  8. FENTANYL [Concomitant]
     Dosage: 200.0 UNSPECIFIED UNITS
     Route: 062
  9. FUROSEMIDE [Concomitant]
     Dosage: 40.0 UNSPECIFIED UNITS
     Route: 065
  10. LANSOPRAZOLE [Concomitant]
     Dosage: 30.0 UNSPECIFIED UNITS
     Route: 065
  11. LISINOPRIL [Concomitant]
     Dosage: 20.0 UNSPECIFIED UNITS
     Route: 065
  12. NAPROXEN [Concomitant]
     Dosage: 250.0 UNSPECIFIED UNITS
     Route: 065
  13. SERTRALINE [Concomitant]
     Dosage: 50.0 UNSPECIFIED UNITS, AT NIGHT
     Route: 065
  14. SIMVASTATIN [Concomitant]
     Dosage: 40.0 UNSPECIFIED UNITS
     Route: 065
  15. TIOTROPIUM [Concomitant]
     Dosage: 18.0 UNSPECIFIED UNITS
     Route: 055

REACTIONS (2)
  - Atrial flutter [Unknown]
  - Off label use [Unknown]
